FAERS Safety Report 4315634-2 (Version None)
Quarter: 2004Q1

REPORT INFORMATION
  Report Type: 
  Country: None (occurrence: None)
  Receive Date: 20040311
  Receipt Date: 20040302
  Transmission Date: 20041129
  Serious: Yes (Hospitalization)
  Sender: FDA-Public Use
  Company Number: JP-GLAXOSMITHKLINE-B0325140A

PATIENT
  Age: 66 Year
  Sex: Female

DRUGS (2)
  1. SAWACILLIN [Suspect]
     Indication: BRONCHITIS
     Route: 048
  2. DASEN [Suspect]
     Indication: BRONCHITIS
     Route: 048

REACTIONS (3)
  - ANAPHYLACTOID REACTION [None]
  - DYSPNOEA [None]
  - LARYNGEAL OEDEMA [None]
